FAERS Safety Report 8237834-1 (Version None)
Quarter: 2012Q1

REPORT INFORMATION
  Report Type: 
  Country: None (occurrence: None)
  Receive Date: 20120326
  Receipt Date: 20120321
  Transmission Date: 20120608
  Serious: Yes (Death, Hospitalization)
  Sender: FDA-Public Use
  Company Number: 131574

PATIENT
  Sex: Female
  Weight: 48.9885 kg

DRUGS (1)
  1. ACETYLCYSTEINE [Suspect]
     Indication: CHRONIC OBSTRUCTIVE PULMONARY DISEASE
     Dosage: 3ML BY INHALATION 2 - 4 TIMES DAILY
     Route: 055
     Dates: start: 20110401, end: 20110822

REACTIONS (1)
  - LUNG INFECTION [None]
